FAERS Safety Report 20839007 (Version 1)
Quarter: 2022Q2

REPORT INFORMATION
  Report Type: Report from Study
  Country: CA (occurrence: CA)
  Receive Date: 20220517
  Receipt Date: 20220517
  Transmission Date: 20220721
  Serious: Yes (Other)
  Sender: FDA-Public Use
  Company Number: CA-SA-SAC20220513000542

PATIENT
  Age: 56 Year
  Sex: Female

DRUGS (14)
  1. DUPILUMAB [Suspect]
     Active Substance: DUPILUMAB
     Indication: Chronic rhinosinusitis with nasal polyps
     Dosage: 300 MG, QM
     Route: 058
     Dates: start: 20210212
  2. SINGULAIR [Concomitant]
     Active Substance: MONTELUKAST SODIUM
  3. BECLOMETHASONE [Concomitant]
     Active Substance: BECLOMETHASONE
  4. MOMETASONE [Concomitant]
     Active Substance: MOMETASONE
  5. ATROVENT [Concomitant]
     Active Substance: IPRATROPIUM BROMIDE
  6. ALBUTEROL [Concomitant]
     Active Substance: ALBUTEROL
  7. ADVAIR HFA [Concomitant]
     Active Substance: FLUTICASONE PROPIONATE\SALMETEROL XINAFOATE
  8. CETIRIZINE [Concomitant]
     Active Substance: CETIRIZINE HYDROCHLORIDE
  9. RABEPRAZOLE [Concomitant]
     Active Substance: RABEPRAZOLE
  10. PINAVERIUM BROMIDE [Concomitant]
     Active Substance: PINAVERIUM BROMIDE
  11. PROGESTERONE [Concomitant]
     Active Substance: PROGESTERONE
  12. AZITHROMYCIN [Concomitant]
     Active Substance: AZITHROMYCIN
  13. CIPRODEX [CIPROFLOXACIN LACTATE] [Concomitant]
  14. ESTROGENS [Concomitant]
     Active Substance: ESTROGENS

REACTIONS (2)
  - COVID-19 pneumonia [Unknown]
  - Inappropriate schedule of product administration [Unknown]
